FAERS Safety Report 20455607 (Version 1)
Quarter: 2022Q1

REPORT INFORMATION
  Report Type: Spontaneous
  Country: US (occurrence: None)
  Receive Date: 20220210
  Receipt Date: 20220210
  Transmission Date: 20220424
  Serious: Yes (Death)
  Sender: FDA-Public Use
  Company Number: None

PATIENT
  Age: 62 Year
  Sex: Female

DRUGS (1)
  1. CAPECITABINE [Suspect]
     Active Substance: CAPECITABINE
     Indication: Breast cancer female
     Dosage: TAKE 3 TABLETS (1,500MG TOTAL) BY MOUTH TWICE DAILY ON DAYS 1 TO 14 OF EACH 21 DAY CYCLE TAKE WITH?
     Route: 048
     Dates: start: 20211019, end: 20211108

REACTIONS (1)
  - Death [None]

NARRATIVE: CASE EVENT DATE: 20211108
